FAERS Safety Report 4947554-4 (Version None)
Quarter: 2006Q1

REPORT INFORMATION
  Report Type: 
  Country: None (occurrence: None)
  Receive Date: 20060320
  Receipt Date: 20060310
  Transmission Date: 20060701
  Serious: Yes (Hospitalization)
  Sender: FDA-Public Use
  Company Number: 2006UW04152

PATIENT
  Age: 19 Year
  Sex: Male

DRUGS (4)
  1. SEROQUEL [Suspect]
     Route: 048
     Dates: start: 20060207
  2. SEROQUEL [Suspect]
     Route: 048
  3. LAMICTAL [Concomitant]
  4. LEXAPRO [Concomitant]

REACTIONS (2)
  - DYSTONIA [None]
  - NEUROLEPTIC MALIGNANT SYNDROME [None]
